FAERS Safety Report 7704259-4 (Version None)
Quarter: 2011Q3

REPORT INFORMATION
  Report Type: 
  Country: None (occurrence: None)
  Receive Date: 20110823
  Receipt Date: 20110302
  Transmission Date: 20111222
  Serious: Yes (Other)
  Sender: FDA-Public Use
  Company Number: JP-PFIZER INC-2011193431

PATIENT
  Sex: Male

DRUGS (2)
  1. MIGLITOL [Suspect]
     Dosage: 150 MG, 1X/DAY
     Route: 048
     Dates: start: 20101227, end: 20110219
  2. MIGLITOL [Suspect]
     Dosage: 100 MG, 1X/DAY
     Route: 048
     Dates: start: 20071101, end: 20101226

REACTIONS (1)
  - HYPOGLYCAEMIA [None]
